FAERS Safety Report 18079809 (Version 1)
Quarter: 2020Q3

REPORT INFORMATION
  Report Type: Spontaneous
  Country: US (occurrence: US)
  Receive Date: 20200728
  Receipt Date: 20200728
  Transmission Date: 20201103
  Serious: No
  Sender: FDA-Public Use
  Company Number: None

PATIENT
  Age: 63 Year
  Sex: Male

DRUGS (3)
  1. ERTAPENEM (ERTAPENEM 1GM/VIL INJ) [Suspect]
     Active Substance: ERTAPENEM
     Indication: PYELONEPHRITIS ACUTE
     Dosage: ?          OTHER STRENGTH:1GM/VIL;?
     Route: 042
     Dates: start: 20200622, end: 20200622
  2. ERTAPENEM (ERTAPENEM 1GM/VIL INJ) [Suspect]
     Active Substance: ERTAPENEM
     Indication: SEPSIS
     Dosage: ?          OTHER STRENGTH:1GM/VIL;?
     Route: 042
     Dates: start: 20200622, end: 20200622
  3. ERTAPENEM (ERTAPENEM 1GM/VIL INJ) [Suspect]
     Active Substance: ERTAPENEM
     Indication: UPPER RESPIRATORY TRACT INFECTION
     Dosage: ?          OTHER STRENGTH:1GM/VIL;?
     Route: 042
     Dates: start: 20200622, end: 20200622

REACTIONS (2)
  - Rash [None]
  - Anaphylactic reaction [None]

NARRATIVE: CASE EVENT DATE: 20200622
